FAERS Safety Report 19414325 (Version 2)
Quarter: 2021Q2

REPORT INFORMATION
  Report Type: Report from Study
  Country: CH (occurrence: CH)
  Receive Date: 20210615
  Receipt Date: 20210629
  Transmission Date: 20210717
  Serious: Yes (Other)
  Sender: FDA-Public Use
  Company Number: CH-BEH-2021129705

PATIENT
  Age: 73 Year
  Sex: Female
  Weight: 75 kg

DRUGS (18)
  1. XARELTO [Concomitant]
     Active Substance: RIVAROXABAN
     Dosage: 10 MILLIGRAM
     Route: 048
  2. XARELTO [Concomitant]
     Active Substance: RIVAROXABAN
     Dosage: 10 MILLIGRAM, QD
     Route: 048
     Dates: start: 201903
  3. BEPANTHEN [DEXPANTHENOL;HYALURONATE SODIUM] [Concomitant]
     Dosage: 1 DOSAGE FORM, TID
     Route: 047
     Dates: start: 201903
  4. URBANYL [Concomitant]
     Active Substance: CLOBAZAM
     Dosage: 10 MILLIGRAM
     Route: 048
  5. BECOZYM [VITAMIN B NOS] [Concomitant]
     Dosage: 1 DOSAGE FORM, QD
     Route: 048
  6. PRIVIGEN [Suspect]
     Active Substance: HUMAN IMMUNOGLOBULIN G
     Dosage: 40 GRAM
     Route: 042
  7. MALTOFER [FERRIC HYDROXIDE POLYMALTOSE COMPLEX] [Concomitant]
     Active Substance: IRON POLYMALTOSE
     Dosage: 6 DOSAGE FORM, QD
     Route: 048
  8. VITAMIN D3 [Concomitant]
     Active Substance: CHOLECALCIFEROL
     Dosage: 10 GTT (DROPS), QD
     Route: 048
     Dates: start: 201903
  9. FML [Concomitant]
     Active Substance: FLUOROMETHOLONE
     Dosage: 1 DOSAGE FORM, QD
     Route: 047
     Dates: start: 201903
  10. PRIVIGEN [Suspect]
     Active Substance: HUMAN IMMUNOGLOBULIN G
     Dosage: 40 GRAM
     Route: 042
  11. URBANYL [Concomitant]
     Active Substance: CLOBAZAM
     Dosage: 10 MILLIGRAM, QD
     Route: 048
     Dates: start: 201903
  12. MAGNESIUM [Concomitant]
     Active Substance: MAGNESIUM
     Dosage: 375 MILLIGRAM
     Route: 048
  13. LEVOCETIRIZIN [Concomitant]
     Active Substance: LEVOCETIRIZINE DIHYDROCHLORIDE
     Dosage: 5 MILLIGRAM, QD
     Route: 048
     Dates: start: 201903
  14. VITAMIN D3 [Concomitant]
     Active Substance: CHOLECALCIFEROL
     Dosage: 10 GTT (DROPS)
     Route: 048
  15. PRIVIGEN [Suspect]
     Active Substance: HUMAN IMMUNOGLOBULIN G
     Indication: POLYNEUROPATHY
     Dosage: 40 GRAM
     Route: 042
     Dates: start: 20200414
  16. VALACYCLOVIR [Concomitant]
     Active Substance: VALACYCLOVIR HYDROCHLORIDE
     Dosage: 1000 MILLIGRAM
  17. MAGNESIUM [Concomitant]
     Active Substance: MAGNESIUM
     Dosage: 2250 MILLIGRAM, QD
     Route: 048
     Dates: start: 201903
  18. VENTOLIN [Concomitant]
     Active Substance: ALBUTEROL SULFATE
     Dosage: UNK, PRN
     Dates: start: 201903

REACTIONS (19)
  - Oedema peripheral [Recovered/Resolved]
  - No adverse event [Unknown]
  - Rash [Recovered/Resolved]
  - Pain in extremity [Not Recovered/Not Resolved]
  - Back pain [Not Recovered/Not Resolved]
  - Arthralgia [Recovered/Resolved]
  - Neck pain [Not Recovered/Not Resolved]
  - Arthralgia [Recovered/Resolved]
  - Bradycardia [Not Recovered/Not Resolved]
  - Hypotension [Recovered/Resolved]
  - Arthralgia [Not Recovered/Not Resolved]
  - Arthralgia [Recovered/Resolved]
  - Herpes zoster [Recovered/Resolved]
  - Therapy interrupted [Unknown]
  - Hypotension [Recovered/Resolved]
  - Off label use [Unknown]
  - Muscle spasms [Recovered/Resolved]
  - Oedema peripheral [Recovering/Resolving]
  - Joint swelling [Recovered/Resolved]

NARRATIVE: CASE EVENT DATE: 20200928
